FAERS Safety Report 24657699 (Version 3)
Quarter: 2025Q2

REPORT INFORMATION
  Report Type: Report from Study
  Country: CA (occurrence: CA)
  Receive Date: 20241125
  Receipt Date: 20250506
  Transmission Date: 20250717
  Serious: Yes (Other)
  Sender: TAKEDA
  Company Number: CA-TAKEDA-2024TUS115502

PATIENT
  Age: 73 Year
  Sex: Male

DRUGS (17)
  1. VEDOLIZUMAB [Suspect]
     Active Substance: VEDOLIZUMAB
     Indication: Colitis ulcerative
  2. VEDOLIZUMAB [Suspect]
     Active Substance: VEDOLIZUMAB
  3. VEDOLIZUMAB [Suspect]
     Active Substance: VEDOLIZUMAB
  4. PREDNISONE [Concomitant]
     Active Substance: PREDNISONE
  5. VITAMIN D3 [Concomitant]
     Active Substance: CHOLECALCIFEROL
  6. METOPROLOL [Concomitant]
     Active Substance: METOPROLOL
     Dates: start: 20240529, end: 20241219
  7. Reactine [Concomitant]
  8. FAMOTIDINE [Concomitant]
     Active Substance: FAMOTIDINE
  9. MAGNESIUM [Concomitant]
     Active Substance: MAGNESIUM
     Dates: start: 20240529, end: 20250107
  10. RIFAMPIN [Concomitant]
     Active Substance: RIFAMPIN
  11. PILOCARPINE [Concomitant]
     Active Substance: PILOCARPINE
  12. METFORMIN [Concomitant]
     Active Substance: METFORMIN HYDROCHLORIDE
  13. OMNARIS [Concomitant]
     Active Substance: CICLESONIDE
  14. MOXIFLOXACIN [Concomitant]
     Active Substance: MOXIFLOXACIN
  15. METAMUCIL [Concomitant]
     Active Substance: PLANTAGO SEED
  16. METHOTREXATE [Concomitant]
     Active Substance: METHOTREXATE
  17. FOLIC ACID [Concomitant]
     Active Substance: FOLIC ACID

REACTIONS (10)
  - Sjogren^s syndrome [Not Recovered/Not Resolved]
  - Blindness [Not Recovered/Not Resolved]
  - Lymphoma [Unknown]
  - Malignant melanoma [Recovering/Resolving]
  - Blood glucose increased [Not Recovered/Not Resolved]
  - Ophthalmological examination abnormal [Not Recovered/Not Resolved]
  - Fall [Recovered/Resolved]
  - Nocturia [Unknown]
  - Urinary tract infection [Recovered/Resolved]
  - Flatulence [Unknown]

NARRATIVE: CASE EVENT DATE: 20241011
